FAERS Safety Report 8397523-X (Version None)
Quarter: 2012Q2

REPORT INFORMATION
  Report Type: 
  Country: None (occurrence: None)
  Receive Date: 20120529
  Receipt Date: 20120529
  Transmission Date: 20120825
  Serious: Yes (Hospitalization)
  Sender: FDA-Public Use
  Company Number: None

PATIENT
  Age: 44 Year
  Sex: Male
  Weight: 104.1 kg

DRUGS (3)
  1. PONATINIB (AP24534) [Suspect]
     Indication: CHRONIC MYELOID LEUKAEMIA
     Dosage: 45MG DAILY PO
     Route: 048
     Dates: start: 20120106
  2. PONATINIB (AP24534) [Suspect]
     Indication: BLAST CRISIS IN MYELOGENOUS LEUKAEMIA
     Dosage: 45MG DAILY PO
     Route: 048
     Dates: start: 20120106
  3. PONATINIB (AP24534) [Suspect]
     Indication: LEUKAEMIA RECURRENT
     Dosage: 45MG DAILY PO
     Route: 048
     Dates: start: 20120106

REACTIONS (7)
  - ABDOMINAL PAIN UPPER [None]
  - METASTASES TO BONE [None]
  - ESCHERICHIA TEST POSITIVE [None]
  - SPLENIC INFARCTION [None]
  - SPLENIC ABSCESS [None]
  - BODY TEMPERATURE INCREASED [None]
  - WHITE BLOOD CELL COUNT INCREASED [None]
